FAERS Safety Report 4851356-7 (Version None)
Quarter: 2005Q4

REPORT INFORMATION
  Report Type: 
  Country: None (occurrence: None)
  Receive Date: 20051212
  Receipt Date: 20051201
  Transmission Date: 20060501
  Serious: Yes (Hospitalization, Other)
  Sender: FDA-Public Use
  Company Number: PHEH2005US13068

PATIENT
  Age: 69 Year
  Sex: Male

DRUGS (11)
  1. DIOVAN [Suspect]
     Indication: HYPERTENSION
     Dosage: 80 MG, QD
     Route: 048
     Dates: start: 20040101, end: 20050901
  2. DIOVAN [Suspect]
     Dosage: 160 MG, QD
     Route: 048
     Dates: start: 20050901
  3. KEPPRA [Suspect]
     Indication: GRAND MAL CONVULSION
     Dosage: TITRATED TO 2000 MG
     Route: 048
     Dates: start: 20050901
  4. KEPPRA [Suspect]
     Dosage: 250 MG, BID
     Route: 048
     Dates: start: 20050901
  5. LAMICTAL [Suspect]
     Indication: GRAND MAL CONVULSION
     Dates: start: 20050701, end: 20050901
  6. LAMICTAL [Suspect]
     Dosage: 200 MG, BID
     Route: 048
     Dates: start: 20050901
  7. DILANTIN [Concomitant]
     Indication: GRAND MAL CONVULSION
     Dates: start: 20050101, end: 20050901
  8. TOPROL-XL [Concomitant]
     Route: 048
     Dates: start: 20040101
  9. FUROSEMIDE [Concomitant]
     Dosage: 20 MG, QD
     Route: 048
  10. FUROSEMIDE [Concomitant]
     Dosage: PRN
     Route: 048
  11. NITROGLICERINA [Concomitant]
     Dosage: UNK, UNK
     Route: 060

REACTIONS (9)
  - AGGRESSION [None]
  - ASTHENIA [None]
  - CONDITION AGGRAVATED [None]
  - CONFUSIONAL STATE [None]
  - DIZZINESS [None]
  - DIZZINESS POSTURAL [None]
  - DYSPNOEA [None]
  - GRAND MAL CONVULSION [None]
  - TRANSURETHRAL PROSTATECTOMY [None]
